FAERS Safety Report 22190656 (Version 1)
Quarter: 2023Q2

REPORT INFORMATION
  Report Type: Spontaneous
  Country: SI (occurrence: SI)
  Receive Date: 20230410
  Receipt Date: 20230410
  Transmission Date: 20230722
  Serious: Yes (Other)
  Sender: FDA-Public Use
  Company Number: None

PATIENT
  Age: 57 Year
  Sex: Female

DRUGS (6)
  1. PLAVIX [Suspect]
     Active Substance: CLOPIDOGREL BISULFATE
     Indication: Myocardial infarction
     Dosage: 75 MG, QD (1 TBL IN THE MORNINGS)
     Route: 048
     Dates: start: 202210
  2. VALSADEN [Concomitant]
     Indication: Myocardial infarction
     Dosage: 320 MG
     Route: 065
     Dates: start: 202210
  3. VALSADEN [Concomitant]
     Indication: Myocardial infarction
     Dosage: 1 DF, QD (IN THE EVENINGS)
     Route: 048
     Dates: start: 202301
  4. ASPIRIN [Concomitant]
     Active Substance: ASPIRIN
     Indication: Myocardial infarction
     Dosage: 100 MG, QD (IN THE MORNINGS)
     Route: 048
  5. ROSUVASTATIN CALCIUM [Concomitant]
     Active Substance: ROSUVASTATIN CALCIUM
     Indication: Myocardial infarction
     Dosage: 40 MG, QD (IN THE MORNINGS)
     Route: 048
     Dates: end: 202303
  6. PANTOPRAZOLE SODIUM [Concomitant]
     Active Substance: PANTOPRAZOLE SODIUM
     Dosage: 40 MG, QD (IN THE MORNINGS)
     Route: 048

REACTIONS (4)
  - Haematochezia [Recovered/Resolved]
  - Arthralgia [Recovered/Resolved]
  - Epistaxis [Recovered/Resolved]
  - Myalgia [Recovered/Resolved]

NARRATIVE: CASE EVENT DATE: 20221206
